FAERS Safety Report 14161999 (Version 1)
Quarter: 2017Q4

REPORT INFORMATION
  Report Type: Spontaneous
  Country: US (occurrence: US)
  Receive Date: 20171106
  Receipt Date: 20171106
  Transmission Date: 20180321
  Serious: No
  Sender: FDA-Public Use
  Company Number: US-ASTRAZENECA-2017SF11844

PATIENT
  Sex: Male

DRUGS (1)
  1. SEROQUEL [Suspect]
     Active Substance: QUETIAPINE FUMARATE
     Route: 048

REACTIONS (5)
  - Gynaecomastia [Unknown]
  - Adverse event [Unknown]
  - Hepatic steatosis [Unknown]
  - Pancreatic steatosis [Unknown]
  - Weight increased [Unknown]
